FAERS Safety Report 6444480-9 (Version None)
Quarter: 2009Q4

REPORT INFORMATION
  Report Type: 
  Country: None (occurrence: None)
  Receive Date: 20091118
  Receipt Date: 20091106
  Transmission Date: 20100525
  Serious: Yes (Hospitalization)
  Sender: FDA-Public Use
  Company Number: FR-WYE-H12146409

PATIENT
  Age: 78 Year
  Sex: Female

DRUGS (5)
  1. CORDARONE [Suspect]
     Indication: DRUG USE FOR UNKNOWN INDICATION
     Dosage: 200 MG, FREQUENCY UNKNOWN
     Route: 048
     Dates: end: 20090721
  2. HYTACAND [Concomitant]
  3. ALDACTONE [Concomitant]
  4. FLUINDIONE [Concomitant]
  5. FUROSEMIDE [Concomitant]

REACTIONS (3)
  - HYPONATRAEMIA [None]
  - HYPOTHYROIDISM [None]
  - LOSS OF CONSCIOUSNESS [None]
